FAERS Safety Report 13573408 (Version 1)
Quarter: 2017Q2

REPORT INFORMATION
  Report Type: Spontaneous
  Country: FR (occurrence: FR)
  Receive Date: 20170523
  Receipt Date: 20170523
  Transmission Date: 20170830
  Serious: Yes (Hospitalization)
  Sender: FDA-Public Use
  Company Number: FR-PFIZER INC-2017224337

PATIENT
  Age: 76 Year
  Sex: Male

DRUGS (10)
  1. PREVISCAN /00789001/ [Concomitant]
     Active Substance: FLUINDIONE
     Dosage: 3/4, 3/4, 1/2
  2. SPIRIVA [Concomitant]
     Active Substance: TIOTROPIUM BROMIDE MONOHYDRATE
  3. INNOVAIR [Concomitant]
     Active Substance: BECLOMETHASONE DIPROPIONATE\FORMOTEROL
  4. CIPROFIBRATE [Concomitant]
     Active Substance: CIPROFIBRATE
  5. LASILIX /00032601/ [Concomitant]
     Active Substance: FUROSEMIDE
  6. ATENOLOL. [Suspect]
     Active Substance: ATENOLOL
     Route: 048
  7. ADENURIC [Concomitant]
     Active Substance: FEBUXOSTAT
  8. GABAPENTIN. [Concomitant]
     Active Substance: GABAPENTIN
  9. HEMIGOXINE NATIVELLE [Suspect]
     Active Substance: DIGOXIN
     Indication: ATRIAL FIBRILLATION
     Route: 048
  10. BIPRETERAX [Concomitant]
     Active Substance: INDAPAMIDE\PERINDOPRIL
     Dosage: 5 MG/1.25 MG, ONE DAILY

REACTIONS (4)
  - Malaise [Recovered/Resolved]
  - Loss of consciousness [Recovered/Resolved]
  - Chest pain [Not Recovered/Not Resolved]
  - Bradycardia [Not Recovered/Not Resolved]

NARRATIVE: CASE EVENT DATE: 20170328
